FAERS Safety Report 12297493 (Version 1)
Quarter: 2016Q2

REPORT INFORMATION
  Report Type: Report from Study
  Country: AR (occurrence: AR)
  Receive Date: 20160422
  Receipt Date: 20160422
  Transmission Date: 20160815
  Serious: Yes (Other)
  Sender: FDA-Public Use
  Company Number: AR-ABBVIE-16P-007-1611540-00

PATIENT
  Age: 43 Year
  Sex: Male

DRUGS (1)
  1. ZEMPLAR [Suspect]
     Active Substance: PARICALCITOL
     Indication: HYPERPARATHYROIDISM SECONDARY
     Route: 042
     Dates: start: 20151102

REACTIONS (8)
  - Pain [Recovered/Resolved]
  - Dialysis related complication [Unknown]
  - Peripheral swelling [Recovered/Resolved]
  - Dengue fever [Recovered/Resolved]
  - Local swelling [Recovered/Resolved]
  - General physical health deterioration [Recovered/Resolved]
  - Internal haemorrhage [Recovered/Resolved]
  - Vascular injury [Recovered/Resolved]

NARRATIVE: CASE EVENT DATE: 20160317
